FAERS Safety Report 23067097 (Version 1)
Quarter: 2023Q4

REPORT INFORMATION
  Report Type: Spontaneous
  Country: US (occurrence: US)
  Receive Date: 20231016
  Receipt Date: 20231016
  Transmission Date: 20240109
  Serious: Yes (Hospitalization, Other)
  Sender: FDA-Public Use
  Company Number: US-BRISTOL-MYERS SQUIBB COMPANY-2023-144003

PATIENT
  Age: 83 Year
  Sex: Female

DRUGS (1)
  1. REVLIMID [Suspect]
     Active Substance: LENALIDOMIDE
     Indication: Plasma cell myeloma
     Dosage: FREQUENCY- QD FOR 21 OF 28 DAYS
     Route: 048
     Dates: start: 20230706

REACTIONS (4)
  - Pancytopenia [Unknown]
  - Blood culture positive [Unknown]
  - Gallbladder disorder [Unknown]
  - Inappropriate schedule of product administration [Unknown]
